FAERS Safety Report 12891113 (Version 1)
Quarter: 2016Q4

REPORT INFORMATION
  Report Type: Spontaneous
  Country: US (occurrence: US)
  Receive Date: 20161025
  Receipt Date: 20161025
  Transmission Date: 20170207
  Serious: No
  Sender: FDA-Public Use
  Company Number: None

PATIENT
  Age: 44 Year
  Sex: Female

DRUGS (1)
  1. HARVONI [Suspect]
     Active Substance: LEDIPASVIR\SOFOSBUVIR
     Indication: HEPATITIS C
     Route: 048
     Dates: start: 20160902

REACTIONS (7)
  - Condition aggravated [None]
  - Wheezing [None]
  - Ocular icterus [None]
  - Chest discomfort [None]
  - Nausea [None]
  - Sinusitis [None]
  - Erythema [None]

NARRATIVE: CASE EVENT DATE: 20161024
